FAERS Safety Report 4428769-0 (Version None)
Quarter: 2004Q3

REPORT INFORMATION
  Report Type: 
  Country: None (occurrence: None)
  Receive Date: 20040818
  Receipt Date: 20040521
  Transmission Date: 20050211
  Serious: No
  Sender: FDA-Public Use
  Company Number: US-BRISTOL-MYERS SQUIBB COMPANY-12593810

PATIENT
  Age: 82 Year
  Sex: Female
  Weight: 59 kg

DRUGS (6)
  1. TEQUIN [Suspect]
     Indication: CELLULITIS
     Route: 048
     Dates: start: 20040518, end: 20040520
  2. DILTIAZEM HCL [Concomitant]
     Dosage: ^FOR A LONG TIME^
  3. WARFARIN SODIUM [Concomitant]
     Dosage: ALTERNATING WITH 7.5 MG ^FOR AWHILE^
  4. LIPITOR [Concomitant]
     Dosage: ^FOR YEARS^
  5. TRIAMTERENE [Concomitant]
     Dosage: ^FOR A FEW MONTHS^
  6. EYE DROPS [Concomitant]

REACTIONS (7)
  - ANOREXIA [None]
  - DIZZINESS [None]
  - ERUCTATION [None]
  - FEELING ABNORMAL [None]
  - INTESTINAL FUNCTIONAL DISORDER [None]
  - NAUSEA [None]
  - VOMITING [None]
